FAERS Safety Report 5267681-4 (Version None)
Quarter: 2007Q1

REPORT INFORMATION
  Report Type: 
  Country: None (occurrence: None)
  Receive Date: 20070316
  Receipt Date: 20070309
  Transmission Date: 20070707
  Serious: Yes (Hospitalization, Other)
  Sender: FDA-Public Use
  Company Number: FR-PFIZER INC-2006132352

PATIENT
  Sex: Female
  Weight: 63 kg

DRUGS (3)
  1. ZOLOFT [Suspect]
     Indication: DEPRESSION
     Route: 048
  2. BROMAZEPAM [Concomitant]
     Indication: ANXIETY
     Route: 048
  3. ACETAMINOPHEN [Concomitant]

REACTIONS (4)
  - ABSCESS INTESTINAL [None]
  - ASTHENIA [None]
  - HYPONATRAEMIA [None]
  - SIGMOIDITIS [None]
